FAERS Safety Report 8396465-3 (Version None)
Quarter: 2012Q2

REPORT INFORMATION
  Report Type: 
  Country: None (occurrence: None)
  Receive Date: 20120530
  Receipt Date: 20120522
  Transmission Date: 20120825
  Serious: Yes (Hospitalization)
  Sender: FDA-Public Use
  Company Number: US-ALEXION PHARMACEUTICALS INC.-A201200985

PATIENT
  Sex: Female

DRUGS (21)
  1. GLIPIZIDE [Concomitant]
     Dosage: 5 MG, 2 IN AM, 1 IN PM
  2. FUROSEMIDE [Concomitant]
     Dosage: 40 MG, QD
  3. AMLODIPINE BESYLATE [Concomitant]
     Dosage: 5 MG, QD
  4. MULTI-VITAMIN [Concomitant]
     Dosage: UNK, QD
  5. SOLIRIS [Suspect]
     Indication: PAROXYSMAL NOCTURNAL HAEMOGLOBINURIA
     Dosage: 900 MG, Q2W
     Route: 042
  6. BRIMONIDINE TARTRATE [Concomitant]
     Dosage: 1 GGT BOTH EYES BIDUNK
  7. OMEPRAZOLE [Concomitant]
     Dosage: 20 MG, QD
  8. ALLOPURINOL [Concomitant]
     Dosage: 300 MG, QD
  9. EXJADE [Concomitant]
  10. ASPIRIN [Concomitant]
     Dosage: 81 MG, QD
  11. CALCIUM CARBONATE [Concomitant]
     Dosage: 1 TAB BID
  12. AMLODIPINE EYEDROPS [Concomitant]
  13. ATENOLOL [Concomitant]
     Dosage: 25 MG, QD
  14. COLACE [Concomitant]
     Indication: CONSTIPATION
     Dosage: 100 MG, BID
  15. TYLENOL [Concomitant]
     Dosage: 650 MG, UQ 4 HRS PRN
  16. PNEUMOVAX 23 [Suspect]
     Indication: IMMUNISATION
     Route: 065
  17. ARANESP [Concomitant]
     Dosage: 300 ?G, Q 2 WEEKS
     Route: 058
  18. COMBIVENT [Concomitant]
     Dosage: 2 PUFFS Q 4 HRS PRN
  19. PREDNISONE TAB [Concomitant]
  20. SIMVASTATIN [Concomitant]
     Dosage: 20 MG, QD
  21. BENADRYL [Concomitant]
     Dosage: 25 MG, QD

REACTIONS (6)
  - HAEMATURIA [None]
  - ILEUS [None]
  - PLATELET COUNT DECREASED [None]
  - CELLULITIS [None]
  - PNEUMONIA [None]
  - HAEMOGLOBIN DECREASED [None]
